FAERS Safety Report 4846069-1 (Version None)
Quarter: 2005Q4

REPORT INFORMATION
  Report Type: 
  Country: None (occurrence: None)
  Receive Date: 20051130
  Receipt Date: 20051116
  Transmission Date: 20060501
  Serious: Yes (Other)
  Sender: FDA-Public Use
  Company Number: 2005157969

PATIENT
  Age: 81 Year
  Sex: Male

DRUGS (6)
  1. MACUGEN [Suspect]
     Indication: MACULAR DEGENERATION
     Dates: start: 20051017
  2. POVIDONE IODINE [Suspect]
     Indication: ILL-DEFINED DISORDER
     Dates: start: 20051017
  3. AVAPRO [Concomitant]
  4. ATENOLOL [Concomitant]
  5. HYTRIN [Concomitant]
  6. NAPROXEN [Concomitant]

REACTIONS (2)
  - ANGIONEUROTIC OEDEMA [None]
  - DYSPHAGIA [None]
